FAERS Safety Report 8046257-X (Version None)
Quarter: 2012Q1

REPORT INFORMATION
  Report Type: 
  Country: None (occurrence: None)
  Receive Date: 20120113
  Receipt Date: 20120102
  Transmission Date: 20120608
  Serious: Yes (Hospitalization, Other)
  Sender: FDA-Public Use
  Company Number: RU-PFIZER INC-2012000953

PATIENT
  Age: 57 Year
  Sex: Female

DRUGS (2)
  1. CORDARONE [Suspect]
     Dosage: 5 G (25 TABLETS) ONCE
     Route: 048
  2. CORDARONE [Suspect]
     Indication: ARRHYTHMIA
     Dosage: 600 MG, DAILY
     Route: 048

REACTIONS (8)
  - ELECTROCARDIOGRAM QT PROLONGED [None]
  - ATRIOVENTRICULAR BLOCK FIRST DEGREE [None]
  - ATRIAL FLUTTER [None]
  - VENTRICULAR EXTRASYSTOLES [None]
  - KERATOPATHY [None]
  - INTENTIONAL OVERDOSE [None]
  - SUICIDE ATTEMPT [None]
  - HYPOTENSION [None]
